FAERS Safety Report 18198696 (Version 1)
Quarter: 2020Q3

REPORT INFORMATION
  Report Type: Spontaneous
  Country: US (occurrence: US)
  Receive Date: 20200826
  Receipt Date: 20200826
  Transmission Date: 20201103
  Serious: Yes (Hospitalization)
  Sender: FDA-Public Use
  Company Number: US-TEVA-2020-US-1818227

PATIENT
  Age: 14 Year
  Sex: Female
  Weight: 72 kg

DRUGS (4)
  1. PREDNISONE. [Suspect]
     Active Substance: PREDNISONE
     Indication: ASTHMA
     Dosage: 20 MILLIGRAM DAILY;
     Route: 048
  2. BECLOMETHASONE [Suspect]
     Active Substance: BECLOMETHASONE
     Indication: ASTHMA
     Dosage: 160 MICROGRAM DAILY; AN ORAL METERED?DOSE INHALER OF BECLOMETHASONE (80 MG TWICE DAILY).
     Route: 048
  3. BECLOMETHASONE [Suspect]
     Active Substance: BECLOMETHASONE
  4. LIVE ATTENUATED VARICELLA VACCINE [Suspect]
     Active Substance: VARICELLA-ZOSTER VIRUS STRAIN OKA/MERCK LIVE ANTIGEN
     Indication: IMMUNISATION
     Dosage: AT AGES 1 AND 5 YEARS
     Route: 065

REACTIONS (1)
  - Herpes zoster meningitis [Recovered/Resolved]
